FAERS Safety Report 22901070 (Version 2)
Quarter: 2023Q4

REPORT INFORMATION
  Report Type: Spontaneous
  Country: KR (occurrence: KR)
  Receive Date: 20230904
  Receipt Date: 20231031
  Transmission Date: 20240110
  Serious: Yes (Other)
  Sender: FDA-Public Use
  Company Number: KR-BAYER-2023A123154

PATIENT
  Age: 62 Year

DRUGS (4)
  1. EYLEA [Suspect]
     Active Substance: AFLIBERCEPT
     Indication: Neovascular age-related macular degeneration
     Dosage: 1-MONTH INTERVALS FOR THE FIRST 3 INJECTIONS, SOL FOR INJ, 40MG/ML
     Route: 031
  2. EYLEA [Suspect]
     Active Substance: AFLIBERCEPT
     Dosage: 2 MONTHS, 5 CONSECUTIVE BIMONTHLY AFLIBERCEPT INJECTIONS, SOL FOR INJ, 40MG/ML
     Route: 031
  3. EYLEA [Suspect]
     Active Substance: AFLIBERCEPT
     Dosage: SHORTENING OF INJECTION INTERVAL TO { 2-MONTH INTERVALS, SOL FOR INJ, 40MG/ML
     Route: 031
  4. EYLEA [Suspect]
     Active Substance: AFLIBERCEPT
     Dosage: 2 ADDITIONAL INJECTIONS WITH 6 WEEKS INTERVAL, SOL FOR INJ, 40MG/ML
     Route: 031

REACTIONS (3)
  - Detachment of retinal pigment epithelium [Unknown]
  - Inappropriate schedule of product administration [Unknown]
  - Therapeutic product effect incomplete [Unknown]
